FAERS Safety Report 14477765 (Version 1)
Quarter: 2018Q1

REPORT INFORMATION
  Report Type: Report from Study
  Country: US (occurrence: US)
  Receive Date: 20180201
  Receipt Date: 20180201
  Transmission Date: 20180509
  Serious: No
  Sender: FDA-Public Use
  Company Number: US-EXELIXIS-CABO-17009759

PATIENT
  Sex: Male

DRUGS (10)
  1. BENICAR HCT [Concomitant]
     Active Substance: HYDROCHLOROTHIAZIDE\OLMESARTAN MEDOXOMIL
  2. CLONIDINE. [Concomitant]
     Active Substance: CLONIDINE
  3. TIMOLOL. [Concomitant]
     Active Substance: TIMOLOL
  4. CABOMETYX [Suspect]
     Active Substance: CABOZANTINIB S-MALATE
     Indication: METASTASES TO LUNG
     Dosage: 40 MG, QD
     Route: 048
     Dates: start: 20170806
  5. FENOFIBRATE. [Concomitant]
     Active Substance: FENOFIBRATE
  6. TAZTIA XT [Concomitant]
     Active Substance: DILTIAZEM HYDROCHLORIDE
  7. CABOMETYX [Suspect]
     Active Substance: CABOZANTINIB S-MALATE
     Indication: RENAL CANCER
     Dosage: 60 MG, QD
     Route: 048
     Dates: start: 20170609, end: 20170708
  8. COLAZAL [Concomitant]
     Active Substance: BALSALAZIDE DISODIUM
  9. ALLOPURINOL. [Concomitant]
     Active Substance: ALLOPURINOL
  10. TAMSULOSIN HCL [Concomitant]
     Active Substance: TAMSULOSIN HYDROCHLORIDE

REACTIONS (7)
  - Blister [Unknown]
  - Fatigue [Unknown]
  - Alopecia [Unknown]
  - Pain in extremity [Unknown]
  - Confusional state [Unknown]
  - Skin ulcer [Unknown]
  - Hypertension [Unknown]
